FAERS Safety Report 23794202 (Version 2)
Quarter: 2024Q2

REPORT INFORMATION
  Report Type: Spontaneous
  Country: US (occurrence: US)
  Receive Date: 20240429
  Receipt Date: 20240528
  Transmission Date: 20240716
  Serious: Yes (Other)
  Sender: FDA-Public Use
  Company Number: US-PFIZER INC-202400094006

PATIENT
  Age: 78 Year
  Sex: Male

DRUGS (3)
  1. BOSULIF [Suspect]
     Active Substance: BOSUTINIB MONOHYDRATE
     Dosage: 400MG BY MOUTH DAILY
     Route: 048
     Dates: start: 20240323
  2. BOSULIF [Suspect]
     Active Substance: BOSUTINIB MONOHYDRATE
     Dosage: 400 MG, DAILY
     Dates: start: 20240323
  3. SPRYCEL [Concomitant]
     Active Substance: DASATINIB

REACTIONS (7)
  - Cardiomegaly [Unknown]
  - Heart valve incompetence [Unknown]
  - Diarrhoea [Recovering/Resolving]
  - Skin laceration [Recovering/Resolving]
  - Dyspnoea [Unknown]
  - Swelling [Unknown]
  - Weight decreased [Unknown]

NARRATIVE: CASE EVENT DATE: 20240101
